FAERS Safety Report 5158361-4 (Version None)
Quarter: 2006Q4

REPORT INFORMATION
  Report Type: 
  Country: None (occurrence: None)
  Receive Date: 20061128
  Receipt Date: 20060105
  Transmission Date: 20070319
  Serious: No
  Sender: FDA-Public Use
  Company Number: US-GLAXOSMITHKLINE-A0587924A

PATIENT
  Age: 74 Year
  Sex: Male

DRUGS (4)
  1. LANOXIN [Suspect]
     Dosage: .25MG PER DAY
     Route: 048
     Dates: start: 19900101
  2. BENAZEPRIL HYDROCHLORIDE [Concomitant]
  3. HYDROCHLOROTHIAZIDE [Concomitant]
  4. PRAVACHOL [Concomitant]

REACTIONS (2)
  - CARDIOACTIVE DRUG LEVEL DECREASED [None]
  - EXTRASYSTOLES [None]
